FAERS Safety Report 12902514 (Version 1)
Quarter: 2016Q4

REPORT INFORMATION
  Report Type: Spontaneous
  Country: US (occurrence: US)
  Receive Date: 20161101
  Receipt Date: 20161101
  Transmission Date: 20170207
  Serious: Yes (Life-Threatening, Hospitalization)
  Sender: FDA-Public Use
  Company Number: None

PATIENT
  Age: 57 Year
  Sex: Male
  Weight: 66.15 kg

DRUGS (12)
  1. CRESEMBA [Suspect]
     Active Substance: ISAVUCONAZONIUM SULFATE
     Indication: RESPIRATORY TRACT INFECTION FUNGAL
     Dosage: ?          QUANTITY:2 CAPSULE(S);?
     Route: 048
     Dates: start: 20161010, end: 20161027
  2. BACTRIM [Concomitant]
     Active Substance: SULFAMETHOXAZOLE\TRIMETHOPRIM
  3. MULTI VITMAIN [Concomitant]
  4. ZORTRESS [Concomitant]
     Active Substance: EVEROLIMUS
  5. AZITHROMYCIN ANHYDROUS. [Concomitant]
     Active Substance: AZITHROMYCIN ANHYDROUS
  6. PREDNISONE. [Concomitant]
     Active Substance: PREDNISONE
  7. VALCYTE [Concomitant]
     Active Substance: VALGANCICLOVIR HYDROCHLORIDE
  8. ADVAIR HFA [Concomitant]
     Active Substance: FLUTICASONE PROPIONATE\SALMETEROL XINAFOATE
  9. CALCIUM [Concomitant]
     Active Substance: CALCIUM
  10. TACROLIMUS. [Concomitant]
     Active Substance: TACROLIMUS
  11. NYSTATIN. [Concomitant]
     Active Substance: NYSTATIN
  12. MAGNESIUM [Concomitant]
     Active Substance: MAGNESIUM

REACTIONS (6)
  - Diarrhoea [None]
  - Retching [None]
  - Asthenia [None]
  - Abdominal distension [None]
  - Dyspnoea [None]
  - Acute kidney injury [None]

NARRATIVE: CASE EVENT DATE: 20161024
